FAERS Safety Report 19694193 (Version 2)
Quarter: 2021Q4

REPORT INFORMATION
  Report Type: Report from Study
  Country: ZA (occurrence: ZA)
  Receive Date: 20210813
  Receipt Date: 20211130
  Transmission Date: 20220303
  Serious: Yes (Death)
  Sender: FDA-Public Use
  Company Number: ZA-NOVOPROD-836698

PATIENT
  Age: 47 Year
  Sex: Male

DRUGS (4)
  1. GLICLAZIDE [Concomitant]
     Active Substance: GLICLAZIDE
     Indication: Diabetes mellitus
     Dosage: 60 MG
     Route: 048
     Dates: end: 202107
  2. EFAVIRENZ\EMTRICITABINE\TENOFOVIR\TENOFOVIR DISOPROXIL FUMARATE [Concomitant]
     Active Substance: EFAVIRENZ\EMTRICITABINE\TENOFOVIR\TENOFOVIR DISOPROXIL FUMARATE
     Indication: Antiviral treatment
     Dosage: UNK
     Route: 048
     Dates: end: 202107
  3. METFORMIN HYDROCHLORIDE [Concomitant]
     Active Substance: METFORMIN HYDROCHLORIDE
     Indication: Diabetes mellitus
     Dosage: 1000 MG
     Route: 048
     Dates: end: 202107
  4. INSULIN ASPART [Suspect]
     Active Substance: INSULIN ASPART
     Indication: Diabetes mellitus
     Dosage: UNK
     Route: 065
     Dates: end: 202107

REACTIONS (1)
  - Death [Fatal]

NARRATIVE: CASE EVENT DATE: 20210701
